FAERS Safety Report 5322880-8 (Version None)
Quarter: 2007Q2

REPORT INFORMATION
  Report Type: 
  Country: None (occurrence: None)
  Receive Date: 20070511
  Receipt Date: 20070502
  Transmission Date: 20071010
  Serious: Yes (Other)
  Sender: FDA-Public Use
  Company Number: US-PFIZER INC-2007036433

PATIENT
  Sex: Female

DRUGS (1)
  1. NEURONTIN [Suspect]
     Indication: FIBROMYALGIA

REACTIONS (4)
  - AFFECT LABILITY [None]
  - BALANCE DISORDER [None]
  - DEPRESSION [None]
  - FALL [None]
